FAERS Safety Report 6111901-0 (Version None)
Quarter: 2009Q1

REPORT INFORMATION
  Report Type: 
  Country: None (occurrence: None)
  Receive Date: 20090311
  Receipt Date: 20090304
  Transmission Date: 20090719
  Serious: Yes (Death, Hospitalization)
  Sender: FDA-Public Use
  Company Number: CN-WYE-H06739208

PATIENT
  Sex: Female
  Weight: 70 kg

DRUGS (1)
  1. TEMSIROLIMUS [Suspect]
     Indication: RENAL CELL CARCINOMA
     Route: 042
     Dates: start: 20080903, end: 20081105

REACTIONS (4)
  - LUNG INFECTION [None]
  - PLEURAL EFFUSION [None]
  - RESPIRATORY FAILURE [None]
  - URINARY TRACT INFECTION [None]
